FAERS Safety Report 19504080 (Version 1)
Quarter: 2021Q3

REPORT INFORMATION
  Report Type: Not Available
  Country: CO (occurrence: CO)
  Receive Date: 20210707
  Receipt Date: 20210707
  Transmission Date: 20211014
  Serious: Yes (Death, Hospitalization, Other)
  Sender: FDA-Public Use
  Company Number: CO-TEIKOKU PHARMA USA-TPU2021-00657

PATIENT
  Age: 91 Year
  Sex: Male

DRUGS (2)
  1. VERSATIS [Suspect]
     Active Substance: LIDOCAINE
     Indication: ARTHRALGIA
  2. VERSATIS [Suspect]
     Active Substance: LIDOCAINE
     Indication: PAIN
     Route: 061
     Dates: start: 20210220

REACTIONS (4)
  - Chronic obstructive pulmonary disease [Unknown]
  - Cardiac disorder [Unknown]
  - Inappropriate schedule of product administration [Unknown]
  - Cardio-respiratory arrest [Fatal]
